FAERS Safety Report 18802361 (Version 4)
Quarter: 2021Q1

REPORT INFORMATION
  Report Type: Report from Study
  Country: MY (occurrence: MY)
  Receive Date: 20210128
  Receipt Date: 20210304
  Transmission Date: 20210419
  Serious: Yes (Death, Hospitalization)
  Sender: FDA-Public Use
  Company Number: MY-CELGENEUS-MYS-20210105841

PATIENT
  Age: 58 Year
  Sex: Male
  Weight: 50 kg

DRUGS (26)
  1. LACTULOSE. [Concomitant]
     Active Substance: LACTULOSE
     Indication: PRODUCT USED FOR UNKNOWN INDICATION
     Dosage: 15 MILLILITER
     Route: 048
     Dates: start: 20210115, end: 20210118
  2. DEXAMETHASONE. [Suspect]
     Active Substance: DEXAMETHASONE
     Indication: REFRACTORY CYTOPENIA WITH UNILINEAGE DYSPLASIA
     Route: 065
     Dates: start: 20210108, end: 20210115
  3. TRIMETHOPRIM SULFAMETHOXAZOLE [Concomitant]
     Active Substance: SULFAMETHOXAZOLE\TRIMETHOPRIM
     Indication: PROPHYLAXIS
     Dosage: 2 TAB
     Route: 048
     Dates: start: 20200113, end: 20210118
  4. CALCIUM GLUCONATE. [Concomitant]
     Active Substance: CALCIUM GLUCONATE
     Indication: PRODUCT USED FOR UNKNOWN INDICATION
     Dosage: 1GM IN 100CC 0.9PERCENT NACL
     Route: 041
     Dates: start: 20210108, end: 20210108
  5. TAZOCIN [Concomitant]
     Active Substance: PIPERACILLIN SODIUM\TAZOBACTAM SODIUM
     Indication: PRODUCT USED FOR UNKNOWN INDICATION
     Dosage: 4.5 MILLIGRAM
     Route: 041
     Dates: start: 20210114, end: 20210114
  6. NORADRENALINE [Concomitant]
     Active Substance: NOREPINEPHRINE
     Indication: PRODUCT USED FOR UNKNOWN INDICATION
     Dosage: 8 MILLIGRAM IN 50CC DEXT 5%
     Route: 041
     Dates: start: 20210115, end: 20210118
  7. DOPAMINE [Concomitant]
     Active Substance: DOPAMINE HYDROCHLORIDE
     Indication: PRODUCT USED FOR UNKNOWN INDICATION
     Dosage: 200 MILLIGRAM IN 50CC DEXT 5% AT 5CC/HOUR
     Route: 041
     Dates: start: 20210117, end: 20210118
  8. POTASSIUM DIHYDROGEN PHOSPHATE [Concomitant]
     Active Substance: POTASSIUM PHOSPHATE, MONOBASIC
     Indication: PRODUCT USED FOR UNKNOWN INDICATION
     Dosage: 10 MMOL IN 100CC 0.9PERCENT NACL
     Route: 041
     Dates: start: 20210108, end: 20210108
  9. MORPHINE [Concomitant]
     Active Substance: MORPHINE
     Indication: PRODUCT USED FOR UNKNOWN INDICATION
     Dosage: 5 MG AND 2.5 MG
     Route: 041
     Dates: start: 20210110, end: 20210110
  10. NACL + KCL [Concomitant]
     Dosage: 0.9 PERCENT NACL + 1 GM KCL
     Route: 041
     Dates: start: 20210113, end: 20210118
  11. FENTANYL. [Concomitant]
     Active Substance: FENTANYL
     Indication: PRODUCT USED FOR UNKNOWN INDICATION
     Dosage: 100 MICROGRAM (NEAT) AT 2CC/HOUR
     Route: 041
     Dates: start: 20210115, end: 20210118
  12. ACYCLOVIR. [Concomitant]
     Active Substance: ACYCLOVIR
     Indication: PROPHYLAXIS
     Dosage: 800 MILLIGRAM
     Route: 048
     Dates: start: 20171222, end: 20210118
  13. NACL [Concomitant]
     Active Substance: SODIUM CHLORIDE
     Indication: PRODUCT USED FOR UNKNOWN INDICATION
     Dosage: .9 PERCENT
     Route: 041
     Dates: start: 20210105, end: 20210105
  14. ZINC OXIDE. [Concomitant]
     Active Substance: ZINC OXIDE
     Indication: PRODUCT USED FOR UNKNOWN INDICATION
     Dosage: APPLY TO THE AFFECTED AREA
     Route: 061
     Dates: start: 20210108, end: 20210118
  15. METOCHLOPRAMIDE [Concomitant]
     Active Substance: METOCLOPRAMIDE HYDROCHLORIDE
     Indication: PRODUCT USED FOR UNKNOWN INDICATION
     Route: 041
     Dates: start: 20210110, end: 20210110
  16. PANTOPRAZOLE [Concomitant]
     Active Substance: PANTOPRAZOLE
     Indication: PRODUCT USED FOR UNKNOWN INDICATION
     Dosage: 40 MILLIGRAM
     Route: 041
     Dates: start: 20210115, end: 20210118
  17. GELOFUSIN [Concomitant]
     Active Substance: GELATIN\POTASSIUM CHLORIDE\SODIUM CHLORIDE
     Indication: PRODUCT USED FOR UNKNOWN INDICATION
     Dosage: 1 PINT
     Route: 041
     Dates: start: 20210116, end: 20210116
  18. POMALIDOMIDE [Suspect]
     Active Substance: POMALIDOMIDE
     Indication: PLASMA CELL MYELOMA
     Dosage: 4 MILLIGRAM
     Route: 048
     Dates: start: 20210108, end: 20210115
  19. FILGRASTIM [Concomitant]
     Active Substance: FILGRASTIM
     Indication: PRODUCT USED FOR UNKNOWN INDICATION
     Dosage: 300 MCG/0.5 ML
     Route: 041
     Dates: start: 20210115, end: 20210118
  20. METHYL SALICYLATE [Concomitant]
     Active Substance: METHYL SALICYLATE
     Indication: PRODUCT USED FOR UNKNOWN INDICATION
     Dosage: APPLY TO THE AFFECTED AREA
     Route: 061
     Dates: start: 20210108, end: 20210118
  21. TRANEXAMIC ACID. [Concomitant]
     Active Substance: TRANEXAMIC ACID
     Indication: PRODUCT USED FOR UNKNOWN INDICATION
     Dosage: 1500 MILLIGRAM
     Route: 048
     Dates: start: 20210112, end: 20210118
  22. NACL + KCL [Concomitant]
     Indication: PRODUCT USED FOR UNKNOWN INDICATION
     Dosage: 0.9 PERCENT NACL + 1 GM KCL
     Route: 041
     Dates: start: 20210106, end: 20210107
  23. MIDAZOLAM. [Concomitant]
     Active Substance: MIDAZOLAM
     Indication: PRODUCT USED FOR UNKNOWN INDICATION
     Dosage: 30 MILLIGRAM IN 50 CC 0.9% NACL AT 2CC/HOUR
     Route: 041
     Dates: start: 20210115, end: 20210118
  24. TRAMADOL. [Concomitant]
     Active Substance: TRAMADOL
     Indication: ANALGESIC THERAPY
     Dosage: 150 MILLIGRAM
     Route: 048
     Dates: start: 20200930, end: 20210118
  25. NACL [Concomitant]
     Active Substance: SODIUM CHLORIDE
     Dosage: .9 PERCENT
     Route: 041
     Dates: start: 20210108, end: 20210112
  26. TAZOCIN [Concomitant]
     Active Substance: PIPERACILLIN SODIUM\TAZOBACTAM SODIUM
     Dosage: 2.25 MILLIGRAM
     Route: 041
     Dates: start: 20210115, end: 20210118

REACTIONS (2)
  - Pneumonia [Fatal]
  - Cellulitis [Fatal]

NARRATIVE: CASE EVENT DATE: 202101
